FAERS Safety Report 7274263 (Version 4)
Quarter: 2013Q1

REPORT INFORMATION
  Report Type: Spontaneous
  Country: BE (occurrence: BE)
  Receive Date: 20100209
  Receipt Date: 20130226
  Transmission Date: 20140127
  Serious: Yes (Death, Other)
  Sender: FDA-Public Use
  Company Number: BE-PFIZER INC-2010014304

PATIENT
  Age: 37 Year
  Sex: Male
  Weight: 75 kg

DRUGS (2)
  1. CHAMPIX [Suspect]
     Indication: SMOKING CESSATION THERAPY
     Dosage: 1 MG, 2X/DAY
     Route: 048
     Dates: start: 20090917, end: 20091107
  2. CHAMPIX [Interacting]
     Dosage: 83 TABLETS, SINGLE
     Route: 048
     Dates: start: 20091108

REACTIONS (12)
  - Intentional overdose [Fatal]
  - Alcohol interaction [Fatal]
  - Completed suicide [Fatal]
  - Cardiopulmonary failure [Fatal]
  - Hypothermia [Fatal]
  - Convulsion [Not Recovered/Not Resolved]
  - Neuropsychiatric syndrome [Not Recovered/Not Resolved]
  - Psychotic behaviour [Not Recovered/Not Resolved]
  - Confusional state [Not Recovered/Not Resolved]
  - Tongue biting [Not Recovered/Not Resolved]
  - Skin lesion [Not Recovered/Not Resolved]
  - Restlessness [Not Recovered/Not Resolved]
